FAERS Safety Report 25951047 (Version 3)
Quarter: 2025Q4

REPORT INFORMATION
  Report Type: Spontaneous
  Country: CA (occurrence: CA)
  Receive Date: 20251023
  Receipt Date: 20251117
  Transmission Date: 20260118
  Serious: Yes (Other)
  Sender: ASTELLAS
  Company Number: CA-PFIZER INC-PV202500013469

PATIENT
  Age: 77 Year
  Sex: Male
  Weight: 79 kg

DRUGS (23)
  1. PADCEV [Suspect]
     Active Substance: ENFORTUMAB VEDOTIN-EJFV
     Indication: Transitional cell carcinoma metastatic
     Dosage: 97 MG, DAY (D)1 AND D8?POWDER FOR SOLUTION FOR INFUSION
     Route: 042
     Dates: start: 20250129, end: 20250129
  2. PADCEV [Suspect]
     Active Substance: ENFORTUMAB VEDOTIN-EJFV
     Dosage: 77 MG, D1; POWDER FOR SOLUTION FOR INFUSION
     Route: 042
     Dates: start: 20250227, end: 20250227
  3. PADCEV [Suspect]
     Active Substance: ENFORTUMAB VEDOTIN-EJFV
     Dosage: 76 MG D1, D8; POWDER FOR SOLUTION FOR INFUSION
     Route: 042
     Dates: start: 20250305
  4. PADCEV [Suspect]
     Active Substance: ENFORTUMAB VEDOTIN-EJFV
     Dosage: 78 MG, D1 AND D8 OF 21-DAY CYCLE; POWDER FOR SOLUTION FOR INFUSION
     Route: 042
     Dates: start: 20250319
  5. PADCEV [Suspect]
     Active Substance: ENFORTUMAB VEDOTIN-EJFV
     Dosage: 78 MG, D1 AND D8 OF 21 DAY CYCLE; POWDER FOR SOLUTION FOR INFUSION
     Route: 042
     Dates: start: 20250409
  6. PADCEV [Suspect]
     Active Substance: ENFORTUMAB VEDOTIN-EJFV
     Dosage: 59 MG, D1 AND D8 OF 21 DAY CYCLE; POWDER FOR SOLUTION FOR INFUSION
     Route: 042
     Dates: start: 20250430
  7. PADCEV [Suspect]
     Active Substance: ENFORTUMAB VEDOTIN-EJFV
     Dosage: 59 MG, D1 AND D8 OF 21 DAY CYCLE; POWDER FOR SOLUTION FOR INFUSION
     Route: 042
     Dates: start: 20250507
  8. PADCEV [Suspect]
     Active Substance: ENFORTUMAB VEDOTIN-EJFV
     Dosage: 59 MG, D1 AND D8 OF 21 DAY CYCLE; POWDER FOR SOLUTION FOR INFUSION
     Route: 042
     Dates: start: 20250521
  9. PADCEV [Suspect]
     Active Substance: ENFORTUMAB VEDOTIN-EJFV
     Dosage: 59 MG, D1 AND D8; POWDER FOR SOLUTION FOR INFUSION
     Route: 042
     Dates: start: 20250528
  10. PADCEV [Suspect]
     Active Substance: ENFORTUMAB VEDOTIN-EJFV
     Dosage: 59 MG D1 AND D8; POWDER FOR SOLUTION FOR INFUSION
     Route: 042
     Dates: start: 20250611
  11. PADCEV [Suspect]
     Active Substance: ENFORTUMAB VEDOTIN-EJFV
     Dosage: 59 MG D1 AND D8; POWDER FOR SOLUTION FOR INFUSION
     Route: 042
     Dates: start: 20250618
  12. PADCEV [Suspect]
     Active Substance: ENFORTUMAB VEDOTIN-EJFV
     Dosage: 60 MG D1 AND D8 OF 21-DAY CYCLE; POWDER FOR SOLUTION FOR INFUSION
     Route: 042
     Dates: start: 20250702
  13. PADCEV [Suspect]
     Active Substance: ENFORTUMAB VEDOTIN-EJFV
     Dosage: 60MG D1 AND D8 OF 21-DAY CYCLE; POWDER FOR SOLUTION FOR INFUSION
     Route: 042
     Dates: start: 20250723
  14. PADCEV [Suspect]
     Active Substance: ENFORTUMAB VEDOTIN-EJFV
     Dosage: 60 MG D1 AND D8 OF 21-DAY CYCLE; POWDER FOR SOLUTION FOR INFUSION
     Route: 042
     Dates: start: 20250730
  15. PADCEV [Suspect]
     Active Substance: ENFORTUMAB VEDOTIN-EJFV
     Dosage: 59 MG D1 AND D8 OF 21-DAY CYCLE?POWDER FOR SOLUTION FOR INFUSION
     Route: 042
     Dates: start: 20250813
  16. PADCEV [Suspect]
     Active Substance: ENFORTUMAB VEDOTIN-EJFV
     Dosage: DAY 1 AND DAY 8 OF 21-DAY CYCLE?POWDER FOR SOLUTION FOR INFUSION
     Route: 042
     Dates: start: 20250820
  17. PADCEV [Suspect]
     Active Substance: ENFORTUMAB VEDOTIN-EJFV
     Dosage: 58 MG, DAY 1 AND DAY 8 OF 21-DAY CYCLE ?POWDER FOR SOLUTION FOR INFUSION
     Route: 042
     Dates: start: 20251008
  18. PADCEV [Suspect]
     Active Substance: ENFORTUMAB VEDOTIN-EJFV
     Dosage: 58 MG, DAY 1 AND DAY 8 OF 21-DAY CYCLE ?POWDER FOR SOLUTION FOR INFUSION
     Route: 042
     Dates: start: 20251015
  19. PADCEV [Suspect]
     Active Substance: ENFORTUMAB VEDOTIN-EJFV
     Dosage: 58 MG, DAY 1 AND DAY 8 OF 21-DAY CYCLE ?POWDER FOR SOLUTION FOR INFUSION
     Route: 042
     Dates: start: 20251029
  20. PADCEV [Suspect]
     Active Substance: ENFORTUMAB VEDOTIN-EJFV
     Dosage: 58 MG, DAY 1 AND DAY 8 OF 21-DAY CYCLE ?POWDER FOR SOLUTION FOR INFUSION
     Route: 042
     Dates: start: 20251105
  21. KEYTRUDA [Concomitant]
     Active Substance: PEMBROLIZUMAB
     Indication: Product used for unknown indication
     Dosage: CYCLE 2?ONGOING
     Route: 065
     Dates: start: 20250227
  22. KEYTRUDA [Concomitant]
     Active Substance: PEMBROLIZUMAB
     Dosage: UNK
     Route: 065
  23. REMICADE [Concomitant]
     Active Substance: INFLIXIMAB
     Indication: Product used for unknown indication
     Dosage: ONGOING
     Route: 065

REACTIONS (14)
  - Second primary malignancy [Not Recovered/Not Resolved]
  - Rectal neoplasm [Not Recovered/Not Resolved]
  - Rash pruritic [Unknown]
  - Scab [Unknown]
  - Dry skin [Not Recovered/Not Resolved]
  - Rash [Not Recovered/Not Resolved]
  - Weight decreased [Recovering/Resolving]
  - Myalgia [Not Recovered/Not Resolved]
  - Pain [Unknown]
  - Pruritus [Recovered/Resolved]
  - Infection [Unknown]
  - Vitreous floaters [Unknown]
  - Blood pressure systolic increased [Unknown]
  - Off label use [Unknown]

NARRATIVE: CASE EVENT DATE: 20250101
